FAERS Safety Report 17827362 (Version 2)
Quarter: 2021Q1

REPORT INFORMATION
  Report Type: Spontaneous
  Country: CA (occurrence: CA)
  Receive Date: 20200527
  Receipt Date: 20210104
  Transmission Date: 20210419
  Serious: Yes (Hospitalization, Other)
  Sender: FDA-Public Use
  Company Number: CA-SA-2020SA131314

PATIENT

DRUGS (13)
  1. METOPROLOL SALT NOT SPECIFIED [Suspect]
     Active Substance: METOPROLOL
     Indication: PRODUCT USED FOR UNKNOWN INDICATION
     Dosage: UNK
     Route: 048
  2. SIMPONI [Concomitant]
     Active Substance: GOLIMUMAB
  3. COSENTYX [Suspect]
     Active Substance: SECUKINUMAB
     Dosage: 150 MG, QW
     Route: 058
  4. ESOMEPRAZOLE SODIUM. [Concomitant]
     Active Substance: ESOMEPRAZOLE SODIUM
     Dosage: UNK
  5. LEFLUNOMIDE. [Suspect]
     Active Substance: LEFLUNOMIDE
     Indication: PRODUCT USED FOR UNKNOWN INDICATION
     Dosage: 20 MG, QD
     Route: 065
     Dates: start: 201311
  6. COSENTYX [Suspect]
     Active Substance: SECUKINUMAB
     Indication: PSORIATIC ARTHROPATHY
     Dosage: 150 MG, QW
     Route: 058
  7. COSENTYX [Suspect]
     Active Substance: SECUKINUMAB
     Indication: PSORIASIS
     Dosage: 150 MG, QW
     Route: 058
  8. HUMIRA [Concomitant]
     Active Substance: ADALIMUMAB
     Dosage: UNK
  9. CIMZIA [Concomitant]
     Active Substance: CERTOLIZUMAB PEGOL
  10. METHOTREXATE. [Suspect]
     Active Substance: METHOTREXATE
     Indication: PRODUCT USED FOR UNKNOWN INDICATION
     Route: 065
  11. MICARDIS [Concomitant]
     Active Substance: TELMISARTAN
  12. CELEBREX [Concomitant]
     Active Substance: CELECOXIB
     Dosage: 400 MG, QD
     Dates: start: 2001
  13. ENBREL [Concomitant]
     Active Substance: ETANERCEPT
     Dosage: UNK

REACTIONS (25)
  - Ingrowing nail [Unknown]
  - Inappropriate schedule of product administration [Unknown]
  - Pneumonia viral [Unknown]
  - Pulmonary fibrosis [Unknown]
  - Therapeutic product effect decreased [Unknown]
  - Adverse event [Unknown]
  - Back pain [Not Recovered/Not Resolved]
  - Transient ischaemic attack [Unknown]
  - Blister [Unknown]
  - Hypoaesthesia oral [Recovered/Resolved]
  - Product storage error [Unknown]
  - Fungal skin infection [Unknown]
  - Hypoaesthesia [Recovered/Resolved]
  - Psoriasis [Unknown]
  - Abdominal discomfort [Not Recovered/Not Resolved]
  - Malaise [Not Recovered/Not Resolved]
  - Pruritus [Unknown]
  - Dyspnoea [Unknown]
  - Appetite disorder [Unknown]
  - Drug ineffective [Unknown]
  - Diabetes mellitus [Unknown]
  - Dyspnoea [Recovering/Resolving]
  - Cough [Not Recovered/Not Resolved]
  - Headache [Unknown]
  - Migraine [Recovered/Resolved]

NARRATIVE: CASE EVENT DATE: 2016
